FAERS Safety Report 10609700 (Version 4)
Quarter: 2019Q4

REPORT INFORMATION
  Report Type: Spontaneous
  Country: SE (occurrence: SE)
  Receive Date: 20141126
  Receipt Date: 20191206
  Transmission Date: 20200122
  Serious: Yes (Death, Life-Threatening, Hospitalization)
  Sender: FDA-Public Use
  Company Number: SE-009507513-1411SWE011077

PATIENT
  Age: 71 Year
  Sex: Female

DRUGS (17)
  1. LOSARTAN POTASSIUM. [Suspect]
     Active Substance: LOSARTAN POTASSIUM
     Indication: HYPERTENSION
     Dosage: UNK
     Route: 048
     Dates: start: 2014
  2. ETALPHA [Concomitant]
     Active Substance: ALFACALCIDOL
  3. VAGIFEM [Concomitant]
     Active Substance: ESTRADIOL
  4. ATENOLOL. [Concomitant]
     Active Substance: ATENOLOL
  5. CEFOTAXIME SODIUM [Suspect]
     Active Substance: CEFOTAXIME SODIUM
     Indication: ORGANISING PNEUMONIA
     Dosage: UNK
     Route: 048
     Dates: start: 201312
  6. LANTUS [Concomitant]
     Active Substance: INSULIN GLARGINE
  7. FURIX [Concomitant]
     Route: 048
  8. ESOMEPRAZOLE. [Concomitant]
     Active Substance: ESOMEPRAZOLE MAGNESIUM
  9. LORATADINE. [Concomitant]
     Active Substance: LORATADINE
  10. AMLODIPINE [Concomitant]
     Active Substance: AMLODIPINE BESYLATE
  11. DOXAZOSIN [Concomitant]
     Active Substance: DOXAZOSIN MESYLATE
     Dosage: FORMULATION: RELEASE TABLET
  12. AVELOX [Suspect]
     Active Substance: MOXIFLOXACIN HYDROCHLORIDE
     Indication: ORGANISING PNEUMONIA
     Dosage: UNK
     Route: 048
     Dates: start: 201312
  13. CORTISONE ACETATE. [Suspect]
     Active Substance: CORTISONE ACETATE
     Dosage: UNK
     Route: 048
     Dates: start: 201312
  14. ARANESP [Concomitant]
     Active Substance: DARBEPOETIN ALFA
  15. PREDNISOLONE. [Concomitant]
     Active Substance: PREDNISOLONE
  16. HUMALOG [Concomitant]
     Active Substance: INSULIN LISPRO
  17. ATORVASTATIN [Concomitant]
     Active Substance: ATORVASTATIN

REACTIONS (2)
  - Stevens-Johnson syndrome [Fatal]
  - Toxic epidermal necrolysis [Fatal]

NARRATIVE: CASE EVENT DATE: 20140128
